FAERS Safety Report 4395757-2 (Version None)
Quarter: 2004Q3

REPORT INFORMATION
  Report Type: 
  Country: None (occurrence: None)
  Receive Date: 20040708
  Receipt Date: 20040624
  Transmission Date: 20050211
  Serious: Yes (Death, Hospitalization)
  Sender: FDA-Public Use
  Company Number: US-JNJFOC-20040607741

PATIENT
  Age: 52 Year
  Sex: Male

DRUGS (4)
  1. EXTRA STRENGTH TYLENOL [Suspect]
     Dosage: 8000 MG OVER 5.5 HRS
     Dates: start: 19990629, end: 19990629
  2. CEPHALEXIN [Concomitant]
  3. BUTALBITAL [Concomitant]
  4. PANNAZ (PANNAZ) [Concomitant]

REACTIONS (27)
  - ABDOMINAL DISTENSION [None]
  - ALCOHOLISM [None]
  - ARTHRALGIA [None]
  - ASCITES [None]
  - BLOOD PH DECREASED [None]
  - CARDIAC DISORDER [None]
  - CHEST PAIN [None]
  - COLD SWEAT [None]
  - COMA [None]
  - DRUG TOXICITY [None]
  - HEART INJURY [None]
  - HEART RATE INCREASED [None]
  - HEPATIC CIRRHOSIS [None]
  - HEPATIC FAILURE [None]
  - HEPATITIS ALCOHOLIC [None]
  - HEPATORENAL SYNDROME [None]
  - KETOACIDOSIS [None]
  - LUNG DISORDER [None]
  - MULTI-ORGAN FAILURE [None]
  - NAUSEA [None]
  - OVERDOSE [None]
  - PANCREATIC INSUFFICIENCY [None]
  - PARALYSIS [None]
  - PERITONITIS [None]
  - RENAL FAILURE ACUTE [None]
  - SEPSIS [None]
  - VOMITING [None]
